FAERS Safety Report 17457292 (Version 1)
Quarter: 2020Q1

REPORT INFORMATION
  Report Type: Spontaneous
  Country: NL (occurrence: NL)
  Receive Date: 20200225
  Receipt Date: 20200225
  Transmission Date: 20200409
  Serious: Yes (Other)
  Sender: FDA-Public Use
  Company Number: NL-MYLANLABS-2020M1019609

PATIENT
  Sex: Female
  Weight: 68.8 kg

DRUGS (1)
  1. DOXYCYCLINE. [Suspect]
     Active Substance: DOXYCYCLINE
     Indication: SINUSITIS
     Dosage: TABLET, 100 MG (MILLIGRAM), 1 KEER PER DAG, 1
     Dates: start: 20200115, end: 20200118

REACTIONS (2)
  - Hyperhidrosis [Recovered/Resolved]
  - Hallucination, visual [Recovering/Resolving]
